FAERS Safety Report 25700133 (Version 1)
Quarter: 2025Q3

REPORT INFORMATION
  Report Type: Spontaneous
  Country: US (occurrence: US)
  Receive Date: 20250819
  Receipt Date: 20250819
  Transmission Date: 20251021
  Serious: Yes (Other)
  Sender: SHILPA MEDICARE
  Company Number: US-KOANAAP-SML-US-2025-00391

PATIENT
  Sex: Male

DRUGS (3)
  1. CAPECITABINE [Suspect]
     Active Substance: CAPECITABINE
     Indication: Skin squamous cell carcinoma metastatic
  2. CARBOPLATIN [Suspect]
     Active Substance: CARBOPLATIN
     Indication: Skin squamous cell carcinoma metastatic
  3. CETUXIMAB [Suspect]
     Active Substance: CETUXIMAB
     Indication: Skin squamous cell carcinoma metastatic

REACTIONS (1)
  - Disease progression [Unknown]
